FAERS Safety Report 25486014 (Version 1)
Quarter: 2025Q2

REPORT INFORMATION
  Report Type: Spontaneous
  Country: US (occurrence: US)
  Receive Date: 20250626
  Receipt Date: 20250626
  Transmission Date: 20250717
  Serious: No
  Sender: GALDERMA
  Company Number: US-GALDERMA-US2025007392

PATIENT

DRUGS (2)
  1. NEMLUVIO [Suspect]
     Active Substance: NEMOLIZUMAB-ILTO
     Indication: Eczema
     Route: 058
     Dates: start: 20250327, end: 20250327
  2. CLARITIN [Concomitant]
     Active Substance: LORATADINE
     Indication: Seasonal allergy

REACTIONS (1)
  - Inappropriate schedule of product administration [Recovered/Resolved]

NARRATIVE: CASE EVENT DATE: 20250501
